FAERS Safety Report 22524407 (Version 1)
Quarter: 2023Q2

REPORT INFORMATION
  Report Type: Report from Study
  Country: CO (occurrence: CO)
  Receive Date: 20230606
  Receipt Date: 20230606
  Transmission Date: 20230722
  Serious: Yes (Hospitalization, Other)
  Sender: FDA-Public Use
  Company Number: CO-ASTELLAS-2023US016689

PATIENT
  Age: 80 Year
  Sex: Male
  Weight: 65 kg

DRUGS (2)
  1. ENZALUTAMIDE [Suspect]
     Active Substance: ENZALUTAMIDE
     Indication: Hormone-refractory prostate cancer
     Route: 048
     Dates: start: 20221122
  2. ENZALUTAMIDE [Suspect]
     Active Substance: ENZALUTAMIDE
     Route: 048
     Dates: start: 20230530

REACTIONS (5)
  - Back pain [Recovering/Resolving]
  - Internal haemorrhage [Recovering/Resolving]
  - Ulcer [Recovering/Resolving]
  - Immunoglobulins decreased [Recovering/Resolving]
  - Hypertension [Recovering/Resolving]
